FAERS Safety Report 18612696 (Version 5)
Quarter: 2021Q1

REPORT INFORMATION
  Report Type: Spontaneous
  Country: FR (occurrence: FR)
  Receive Date: 20201214
  Receipt Date: 20210208
  Transmission Date: 20210419
  Serious: Yes (Other)
  Sender: FDA-Public Use
  Company Number: FR-FERRINGPH-2020FE08688

PATIENT
  Age: 29 Year
  Sex: Female
  Weight: 120 kg

DRUGS (2)
  1. LOXEN [NICARDIPINE HYDROCHLORIDE] [Concomitant]
     Active Substance: NICARDIPINE HYDROCHLORIDE
     Dosage: 50 MG, 2 TIMES DAILY
     Route: 048
     Dates: start: 20200928
  2. PROPESS [Suspect]
     Active Substance: DINOPROSTONE
     Indication: LABOUR INDUCTION
     Dosage: 10 MG, ONCE/SINGLE
     Route: 067
     Dates: start: 20200929, end: 20200930

REACTIONS (6)
  - Vulvovaginal erythema [Recovered/Resolved]
  - Vulvovaginal dryness [Recovered/Resolved]
  - Product use issue [Recovered/Resolved]
  - Vulvovaginal pain [Recovered/Resolved]
  - Vulval oedema [Recovered/Resolved]
  - Off label use [Recovered/Resolved]

NARRATIVE: CASE EVENT DATE: 20200930
